FAERS Safety Report 6282486-3 (Version None)
Quarter: 2009Q3

REPORT INFORMATION
  Report Type: 
  Country: None (occurrence: None)
  Receive Date: 20090724
  Receipt Date: 20090714
  Transmission Date: 20100115
  Serious: Yes (Other)
  Sender: FDA-Public Use
  Company Number: HU-JNJFOC-20090706175

PATIENT
  Age: 28 Year
  Sex: Male

DRUGS (1)
  1. ITRACONAZOLE [Suspect]
     Indication: FUNGAL INFECTION
     Route: 065

REACTIONS (10)
  - ABDOMINAL PAIN UPPER [None]
  - BILIARY DILATATION [None]
  - BLOOD ALKALINE PHOSPHATASE INCREASED [None]
  - BLOOD BILIRUBIN INCREASED [None]
  - DIABETES MELLITUS [None]
  - JAUNDICE CHOLESTATIC [None]
  - PANCREATIC ENLARGEMENT [None]
  - PANCREATITIS [None]
  - TRANSAMINASES INCREASED [None]
  - WEIGHT DECREASED [None]
